FAERS Safety Report 19569427 (Version 8)
Quarter: 2023Q4

REPORT INFORMATION
  Report Type: Spontaneous
  Country: US (occurrence: US)
  Receive Date: 20210716
  Receipt Date: 20231120
  Transmission Date: 20240110
  Serious: Yes (Hospitalization, Other)
  Sender: FDA-Public Use
  Company Number: US-PFIZER INC-2021841977

PATIENT
  Age: 80 Year
  Sex: Male
  Weight: 82 kg

DRUGS (3)
  1. VYNDAMAX [Suspect]
     Active Substance: TAFAMIDIS
     Indication: Acquired ATTR amyloidosis
     Dosage: 61 MG
  2. VYNDAMAX [Suspect]
     Active Substance: TAFAMIDIS
     Dosage: UNK
  3. VYNDAMAX [Suspect]
     Active Substance: TAFAMIDIS
     Dosage: 61 MG, 1X/DAY
     Route: 048

REACTIONS (3)
  - Hip fracture [Unknown]
  - Knee arthroplasty [Unknown]
  - Fall [Unknown]

NARRATIVE: CASE EVENT DATE: 20200101
